FAERS Safety Report 13671180 (Version 1)
Quarter: 2017Q2

REPORT INFORMATION
  Report Type: Spontaneous
  Country: US (occurrence: US)
  Receive Date: 20170620
  Receipt Date: 20170620
  Transmission Date: 20170830
  Serious: No
  Sender: FDA-Public Use
  Company Number: US-ROCHE-1359714

PATIENT
  Sex: Female

DRUGS (8)
  1. XELODA [Suspect]
     Active Substance: CAPECITABINE
     Indication: BREAST CANCER FEMALE
     Dosage: 4 TABS TWICE DAILY 7 DAYS ON 7 DAYS OFF
     Route: 048
     Dates: start: 20131206
  2. GABAPENTIN. [Concomitant]
     Active Substance: GABAPENTIN
  3. IBUPROFEN. [Concomitant]
     Active Substance: IBUPROFEN
  4. MILK THISTLE [Concomitant]
     Active Substance: MILK THISTLE
  5. XELODA [Suspect]
     Active Substance: CAPECITABINE
     Indication: BONE CANCER
  6. FISH OIL [Concomitant]
     Active Substance: FISH OIL
  7. XELODA [Suspect]
     Active Substance: CAPECITABINE
     Indication: METASTASES TO BONE MARROW
  8. LISINOPRIL. [Concomitant]
     Active Substance: LISINOPRIL

REACTIONS (1)
  - Nausea [Unknown]
